FAERS Safety Report 14240352 (Version 1)
Quarter: 2017Q4

REPORT INFORMATION
  Report Type: Spontaneous
  Country: US (occurrence: US)
  Receive Date: 20171129
  Receipt Date: 20171129
  Transmission Date: 20180321
  Serious: Yes (Other)
  Sender: FDA-Public Use
  Company Number: None

PATIENT
  Age: 20 Month
  Sex: Male
  Weight: 12.9 kg

DRUGS (17)
  1. FLUCONAZOLE. [Concomitant]
     Active Substance: FLUCONAZOLE
  2. CEFEPIME [Concomitant]
     Active Substance: CEFEPIME HYDROCHLORIDE
  3. DEXMEDETOMIDINE. [Concomitant]
     Active Substance: DEXMEDETOMIDINE
  4. CYTARABINE. [Concomitant]
     Active Substance: CYTARABINE
  5. DIPHENHYDRAMINE. [Concomitant]
     Active Substance: DIPHENHYDRAMINE
  6. DEXRAZOXANE. [Concomitant]
     Active Substance: DEXRAZOXANE
  7. PENTAMIDINE [Concomitant]
     Active Substance: PENTAMIDINE
  8. POLYETHYLENE GLYCOL [Concomitant]
     Active Substance: POLYETHYLENE GLYCOLS
  9. DAUNORUBICIN [Concomitant]
     Active Substance: DAUNORUBICIN
  10. FUROSEMIDE. [Concomitant]
     Active Substance: FUROSEMIDE
  11. FENTANYL. [Concomitant]
     Active Substance: FENTANYL
  12. ONDANSETRON [Concomitant]
     Active Substance: ONDANSETRON
  13. ALLOPURINOL. [Concomitant]
     Active Substance: ALLOPURINOL
  14. MYLOTARG [Suspect]
     Active Substance: GEMTUZUMAB OZOGAMICIN
     Indication: ACUTE MYELOID LEUKAEMIA
     Dosage: ?          OTHER FREQUENCY:1 TIME ONLY;?
     Route: 042
     Dates: start: 20171126, end: 20171126
  15. HYDRALAZINE [Concomitant]
     Active Substance: HYDRALAZINE HYDROCHLORIDE
  16. ETOPOSIDE. [Concomitant]
     Active Substance: ETOPOSIDE
  17. ACETAMINOPHEN. [Concomitant]
     Active Substance: ACETAMINOPHEN

REACTIONS (4)
  - Bradycardia [None]
  - Pyrexia [None]
  - Chills [None]
  - Hypotension [None]

NARRATIVE: CASE EVENT DATE: 20171126
